FAERS Safety Report 6743862-5 (Version None)
Quarter: 2010Q2

REPORT INFORMATION
  Report Type: 
  Country: None (occurrence: None)
  Receive Date: 20100527
  Receipt Date: 20100325
  Transmission Date: 20101027
  Serious: No
  Sender: FDA-Public Use
  Company Number: US-KINGPHARMUSA00001-K201000363

PATIENT
  Age: 54 Year
  Sex: Male

DRUGS (3)
  1. FLECTOR [Suspect]
     Indication: MUSCULOSKELETAL PAIN
     Dosage: UNK PATCH, ^INTERMITTENTLY^
     Route: 061
  2. FLECTOR [Suspect]
     Dosage: UNK PATCH, ^INTERMITTENTLY^
     Route: 061
  3. ADVAIR DISKUS 100/50 [Concomitant]

REACTIONS (1)
  - APPLICATION SITE DISCOMFORT [None]
